FAERS Safety Report 9023545 (Version 1)
Quarter: 2013Q1

REPORT INFORMATION
  Report Type: Spontaneous
  Country: BD (occurrence: BD)
  Receive Date: 20130121
  Receipt Date: 20130121
  Transmission Date: 20140127
  Serious: Yes (Death, Other)
  Sender: FDA-Public Use
  Company Number: PHHY2013BD003757

PATIENT
  Age: 49 Year
  Sex: Female
  Weight: 70 kg

DRUGS (8)
  1. ACLASTA [Suspect]
     Indication: OSTEOPOROSIS POSTMENOPAUSAL
     Dosage: ONCE IN A YEAR
     Route: 042
     Dates: start: 20130114
  2. ANGILOCK [Concomitant]
     Indication: HYPERTENSION
     Dosage: UNK
  3. AMARYL [Concomitant]
     Indication: DIABETES MELLITUS
     Dosage: UNK
  4. METFORM [Concomitant]
     Indication: DIABETES MELLITUS
     Dosage: UNK
  5. SANDOCAL D [Concomitant]
     Dosage: UNK
  6. PROBITOR [Concomitant]
  7. BONDROVA [Concomitant]
     Indication: OSTEOPOROSIS
     Dosage: UNK
  8. PARACETAMOL [Concomitant]

REACTIONS (2)
  - Death [Fatal]
  - Creatinine renal clearance decreased [Unknown]
